FAERS Safety Report 6933877-6 (Version None)
Quarter: 2010Q3

REPORT INFORMATION
  Report Type: 
  Country: None (occurrence: None)
  Receive Date: 20100820
  Receipt Date: 20100809
  Transmission Date: 20110219
  Serious: Yes (Hospitalization, Other)
  Sender: FDA-Public Use
  Company Number: US-PFIZER INC-2010082361

PATIENT
  Sex: Female

DRUGS (12)
  1. CHANTIX [Suspect]
     Indication: SMOKING CESSATION THERAPY
     Dosage: STARTER PACK
     Dates: start: 20070712, end: 20070728
  2. PERCOCET [Concomitant]
     Indication: PAIN
     Dosage: UNK
     Dates: start: 20050101
  3. MINOCYCLINE [Concomitant]
     Indication: SYSTEMIC LUPUS ERYTHEMATOSUS
     Dosage: UNK
     Dates: start: 20060101, end: 20090101
  4. ARTEMISIA ASIATICA [Concomitant]
     Indication: LYME DISEASE
     Dosage: UNK
     Dates: start: 20050101, end: 20090101
  5. MEPRON [Concomitant]
     Indication: LYME DISEASE
     Dosage: UNK
     Dates: start: 20050101, end: 20090101
  6. MEPRON [Concomitant]
     Indication: INFECTION
  7. COLACE [Concomitant]
     Indication: CONSTIPATION
     Dosage: UNK
     Dates: start: 20060101, end: 20080101
  8. PLAQUENIL [Concomitant]
     Indication: INFLAMMATION
     Dosage: UNK
     Dates: start: 20050101
  9. PLAQUENIL [Concomitant]
     Indication: LYME DISEASE
  10. PLAQUENIL [Concomitant]
     Indication: OSTEOARTHRITIS
  11. PLAQUENIL [Concomitant]
     Indication: SYSTEMIC LUPUS ERYTHEMATOSUS
  12. MOTRIN [Concomitant]
     Indication: PAIN
     Dosage: UNK

REACTIONS (8)
  - AGGRESSION [None]
  - ANXIETY [None]
  - DEPRESSION [None]
  - INSOMNIA [None]
  - INTENTIONAL OVERDOSE [None]
  - MOOD SWINGS [None]
  - PANIC ATTACK [None]
  - SUICIDE ATTEMPT [None]
